FAERS Safety Report 5229313-0 (Version None)
Quarter: 2007Q1

REPORT INFORMATION
  Report Type: 
  Country: None (occurrence: None)
  Receive Date: 20070131
  Receipt Date: 20070125
  Transmission Date: 20070707
  Serious: Yes (Other)
  Sender: FDA-Public Use
  Company Number: 163-21880-06120991

PATIENT
  Age: 82 Year
  Sex: Female

DRUGS (9)
  1. REVLIMID [Suspect]
     Indication: MULTIPLE MYELOMA
     Dosage: 15 MG, DAILY X 21 DAYS OF A 28 DAY CYCLE, ORAL
     Route: 048
     Dates: start: 20061208
  2. COUMADIN [Concomitant]
  3. NEXIUM [Concomitant]
  4. TYLENOL [Concomitant]
  5. ADVIL [Concomitant]
  6. CENTRUM SILVER (CENTRUM SILVER) [Concomitant]
  7. GLUCOSAMINE CHONDROITIN (CHONDROITIN W/GLUCOSAMINE) [Concomitant]
  8. SYNTHROID [Concomitant]
  9. DECADRON [Concomitant]

REACTIONS (2)
  - BONE PAIN [None]
  - MYALGIA [None]
